FAERS Safety Report 4431729-7 (Version None)
Quarter: 2004Q3

REPORT INFORMATION
  Report Type: 
  Country: None (occurrence: None)
  Receive Date: 20040823
  Receipt Date: 20040823
  Transmission Date: 20050211
  Serious: Yes (Hospitalization, Other)
  Sender: FDA-Public Use
  Company Number: None

PATIENT
  Sex: Female
  Weight: 95.2554 kg

DRUGS (1)
  1. LITHOBID [Suspect]

REACTIONS (4)
  - NAUSEA [None]
  - PRURITUS [None]
  - RETCHING [None]
  - VOMITING [None]
